FAERS Safety Report 22327743 (Version 1)
Quarter: 2023Q2

REPORT INFORMATION
  Report Type: Spontaneous
  Country: US (occurrence: US)
  Receive Date: 20230516
  Receipt Date: 20230516
  Transmission Date: 20230722
  Serious: No
  Sender: FDA-Public Use
  Company Number: US-RADIUS HEALTH INC.-2023US001418

PATIENT
  Age: 63 Year
  Sex: Female

DRUGS (1)
  1. TYMLOS [Suspect]
     Active Substance: ABALOPARATIDE
     Indication: Osteoporosis
     Dosage: 80 MICROGRAM, QD
     Route: 058
     Dates: start: 20230318

REACTIONS (7)
  - Blood pressure decreased [Unknown]
  - Dizziness postural [Unknown]
  - Orthostatic hypotension [Unknown]
  - Tachycardia [Unknown]
  - Fatigue [Unknown]
  - Dizziness [Unknown]
  - Needle issue [Unknown]

NARRATIVE: CASE EVENT DATE: 20230318
